FAERS Safety Report 4620473-9 (Version None)
Quarter: 2005Q1

REPORT INFORMATION
  Report Type: 
  Country: None (occurrence: None)
  Receive Date: 20050324
  Receipt Date: 20050314
  Transmission Date: 20050727
  Serious: Yes (Hospitalization, Other)
  Sender: FDA-Public Use
  Company Number: 2005031434

PATIENT
  Age: 77 Year
  Sex: Male
  Weight: 75 kg

DRUGS (15)
  1. TIKOSYN [Suspect]
     Indication: ATRIAL FIBRILLATION
     Dosage: 1000 MCG (500 MCG, TWICE A DAY), ORAL; SEE IMAGE
     Route: 048
     Dates: end: 20050207
  2. TIKOSYN [Suspect]
     Indication: ATRIAL FIBRILLATION
     Dosage: 1000 MCG (500 MCG, TWICE A DAY), ORAL; SEE IMAGE
     Route: 048
     Dates: start: 20050218, end: 20050219
  3. ASPIRIN [Concomitant]
  4. CARVEDILOL [Concomitant]
  5. TORSEMIDE [Concomitant]
  6. FOLIC ACID [Concomitant]
  7. BENAZEPRIL HCL [Concomitant]
  8. GABAPENTIN [Concomitant]
  9. POTASSIUM ACETATE [Concomitant]
  10. LANSOPRAZOLE [Concomitant]
  11. CHOLESTYRAMINE [Concomitant]
  12. METAMUCIL-2 [Concomitant]
  13. DOPAMINE (DOPAMINE) [Concomitant]
  14. FUROSEMIDE [Concomitant]
  15. HEPARIN-FRACTION, SODIUM SALT (HEPARIN-FRACTION, SODIUM SALT) [Concomitant]

REACTIONS (6)
  - ARRHYTHMIA [None]
  - ASTHENIA [None]
  - CARDIAC FAILURE CONGESTIVE [None]
  - CONDITION AGGRAVATED [None]
  - PNEUMONIA [None]
  - RENAL IMPAIRMENT [None]
